FAERS Safety Report 7540414-4 (Version None)
Quarter: 2011Q2

REPORT INFORMATION
  Report Type: 
  Country: None (occurrence: None)
  Receive Date: 20110610
  Receipt Date: 20110606
  Transmission Date: 20111010
  Serious: Yes (Death, Other)
  Sender: FDA-Public Use
  Company Number: US-ELI_LILLY_AND_COMPANY-US201103000125

PATIENT
  Age: 67 Year
  Sex: Male
  Weight: 85.714 kg

DRUGS (2)
  1. ASPIRIN [Concomitant]
  2. EFFIENT [Suspect]
     Indication: STENT PLACEMENT
     Dosage: 10 MG, QD
     Route: 048
     Dates: start: 20100901

REACTIONS (5)
  - SUBARACHNOID HAEMORRHAGE [None]
  - NAUSEA [None]
  - HAEMORRHAGE INTRACRANIAL [None]
  - SUBDURAL HAEMATOMA [None]
  - HEADACHE [None]
